FAERS Safety Report 6710051-X (Version None)
Quarter: 2010Q2

REPORT INFORMATION
  Report Type: 
  Country: None (occurrence: None)
  Receive Date: 20100504
  Receipt Date: 20100426
  Transmission Date: 20101027
  Serious: Yes (Hospitalization)
  Sender: FDA-Public Use
  Company Number: FR-MERCK-1004FRA00126

PATIENT
  Age: 60 Year
  Sex: Male

DRUGS (18)
  1. EMEND [Suspect]
     Indication: NAUSEA
     Route: 048
     Dates: start: 20090525, end: 20090525
  2. EMEND [Suspect]
     Route: 048
     Dates: start: 20090526, end: 20090527
  3. EMEND [Suspect]
     Route: 048
     Dates: end: 20091005
  4. IRINOTECAN HYDROCHLORIDE [Suspect]
     Route: 042
     Dates: end: 20091005
  5. BEVACIZUMAB [Suspect]
     Indication: RECTAL CANCER
     Route: 042
     Dates: start: 20090525, end: 20091005
  6. FLUOROURACIL [Suspect]
     Indication: RECTAL CANCER
     Route: 042
     Dates: start: 20090525, end: 20091005
  7. LEVOLEUCOVORIN CALCIUM [Suspect]
     Route: 058
     Dates: start: 20090525, end: 20091005
  8. METHYLPREDNISOLONE SODIUM SUCCINATE [Suspect]
     Indication: NAUSEA
     Route: 042
     Dates: start: 20090525, end: 20091005
  9. ONDANSETRON HYDROCHLORIDE [Suspect]
     Indication: NAUSEA
     Route: 042
     Dates: start: 20090525, end: 20091005
  10. ATROPINE [Suspect]
     Indication: NAUSEA
     Route: 058
     Dates: start: 20090525, end: 20091005
  11. ZOLPIDEM TARTRATE [Concomitant]
     Route: 048
  12. PAROXETINE HYDROCHLORIDE [Concomitant]
     Route: 065
  13. POTASSIUM CHLORIDE [Concomitant]
     Indication: HYPOKALAEMIA
     Route: 048
  14. ACETAMINOPHEN [Concomitant]
     Route: 048
  15. RACECADOTRIL [Concomitant]
     Route: 048
  16. METOPIMAZINE [Concomitant]
     Route: 065
  17. PANCREATIN [Concomitant]
     Route: 065
  18. LOPERAMIDE HYDROCHLORIDE [Concomitant]
     Route: 065

REACTIONS (4)
  - ASTHENIA [None]
  - HEADACHE [None]
  - HEPATITIS CHOLESTATIC [None]
  - PARAESTHESIA [None]
